FAERS Safety Report 22279864 (Version 1)
Quarter: 2023Q2

REPORT INFORMATION
  Report Type: Spontaneous
  Country: US (occurrence: US)
  Receive Date: 20230503
  Receipt Date: 20230503
  Transmission Date: 20230721
  Serious: No
  Sender: FDA-Public Use
  Company Number: US-BAUSCH-BL-2023-006561

PATIENT
  Age: 35 Year
  Sex: Male

DRUGS (3)
  1. ONEXTON [Suspect]
     Active Substance: BENZOYL PEROXIDE\CLINDAMYCIN PHOSPHATE
     Indication: Acne
     Route: 061
  2. ONEXTON [Suspect]
     Active Substance: BENZOYL PEROXIDE\CLINDAMYCIN PHOSPHATE
  3. ARGAN OEL [Concomitant]
     Indication: Product used for unknown indication
     Route: 065

REACTIONS (2)
  - Eye swelling [Unknown]
  - Product quality issue [Unknown]
